FAERS Safety Report 11288601 (Version 1)
Quarter: 2015Q3

REPORT INFORMATION
  Report Type: Spontaneous
  Country: US (occurrence: US)
  Receive Date: 20150721
  Receipt Date: 20150721
  Transmission Date: 20151125
  Serious: No
  Sender: FDA-Public Use
  Company Number: US-UNITED THERAPEUTICS-UNT-2015-003343

PATIENT
  Age: 62 Year
  Sex: Female
  Weight: 56.69 kg

DRUGS (4)
  1. REMODULIN [Suspect]
     Active Substance: TREPROSTINIL
     Indication: PULMONARY HYPERTENSION
     Dosage: 0.010 ?G/KG/MIN, CONTINUING
     Route: 058
     Dates: start: 20150319
  2. REMODULIN [Suspect]
     Active Substance: TREPROSTINIL
     Dosage: 0.017 ?G/KG/MIN, CONTINUING
     Route: 058
     Dates: start: 20150319
  3. REMODULIN [Suspect]
     Active Substance: TREPROSTINIL
     Dosage: 0.017 ?G/KG/MIN, CONTINUING
     Route: 058
     Dates: start: 20150423
  4. REVATIO [Concomitant]
     Active Substance: SILDENAFIL CITRATE
     Indication: PRODUCT USED FOR UNKNOWN INDICATION

REACTIONS (4)
  - Dermatitis contact [Unknown]
  - Epistaxis [Unknown]
  - Wheezing [Unknown]
  - Stress [Unknown]

NARRATIVE: CASE EVENT DATE: 201503
